FAERS Safety Report 15462780 (Version 2)
Quarter: 2018Q4

REPORT INFORMATION
  Report Type: Spontaneous
  Country: US (occurrence: US)
  Receive Date: 20181004
  Receipt Date: 20181112
  Transmission Date: 20190204
  Serious: No
  Sender: FDA-Public Use
  Company Number: US-UNITED THERAPEUTICS-UNT-2018-014654

PATIENT
  Sex: Female
  Weight: 72.56 kg

DRUGS (2)
  1. REMODULIN [Suspect]
     Active Substance: TREPROSTINIL
     Dosage: UNK
     Route: 058
  2. REMODULIN [Suspect]
     Active Substance: TREPROSTINIL
     Indication: PULMONARY ARTERIAL HYPERTENSION
     Dosage: 0.14 ?G/KG, CONTINUING AT A RATE OF 0.086 ML/HOUR
     Route: 058
     Dates: start: 20130909

REACTIONS (2)
  - Dysphonia [Unknown]
  - Dyspnoea [Not Recovered/Not Resolved]
